APPROVED DRUG PRODUCT: ACETAMINOPHEN AND CODEINE PHOSPHATE
Active Ingredient: ACETAMINOPHEN; CODEINE PHOSPHATE
Strength: 300MG;60MG
Dosage Form/Route: TABLET;ORAL
Application: A202800 | Product #003 | TE Code: AA
Applicant: AUROLIFE PHARMA LLC
Approved: Apr 15, 2013 | RLD: No | RS: No | Type: RX